FAERS Safety Report 23082766 (Version 1)
Quarter: 2023Q4

REPORT INFORMATION
  Report Type: Spontaneous
  Country: US (occurrence: US)
  Receive Date: 20231019
  Receipt Date: 20231019
  Transmission Date: 20240110
  Serious: Yes (Other)
  Sender: FDA-Public Use
  Company Number: US-PADAGIS-2023PAD01472

PATIENT

DRUGS (2)
  1. HYDROCORTISONE ACETATE [Suspect]
     Active Substance: HYDROCORTISONE ACETATE
     Indication: Haemorrhoids
     Dosage: USED BED TIME FOR FIRST TWO DAYS AND ON 3RD DAY AT EARLY AFTERNOON
     Route: 054
     Dates: start: 20231003, end: 20231005
  2. ESTRIOL [Concomitant]
     Active Substance: ESTRIOL
     Indication: Product used for unknown indication
     Dosage: UNK, QD (AT LABIA)
     Route: 065

REACTIONS (3)
  - Haemorrhage [None]
  - Anorectal discomfort [None]
  - Inappropriate schedule of product administration [Unknown]

NARRATIVE: CASE EVENT DATE: 20231003
